FAERS Safety Report 8837304 (Version 3)
Quarter: 2013Q4

REPORT INFORMATION
  Report Type: Report from Study
  Country: JP (occurrence: JP)
  Receive Date: 20121012
  Receipt Date: 20131205
  Transmission Date: 20140711
  Serious: Yes (Other)
  Sender: FDA-Public Use
  Company Number: JP-009507513-1210JPN002729

PATIENT
  Age: 80 Year
  Sex: Female

DRUGS (10)
  1. ZOLINZA CAPSULES 100MG [Suspect]
     Indication: MYCOSIS FUNGOIDES
     Dosage: 400 MG, QD
     Route: 048
     Dates: start: 20120621, end: 20120918
  2. ZOLINZA CAPSULES 100MG [Suspect]
     Dosage: 300 MG, QD
     Route: 048
     Dates: start: 20120919, end: 20120927
  3. ZOLINZA CAPSULES 100MG [Suspect]
     Dosage: 200 MG, QD
     Route: 048
     Dates: start: 20121016, end: 20130106
  4. ZOLINZA CAPSULES 100MG [Suspect]
     Dosage: 200 MG, QD
     Route: 048
     Dates: start: 20130107, end: 20130124
  5. ALLEGRA [Concomitant]
     Indication: MYCOSIS FUNGOIDES
     Dosage: 60 MG, BID
     Route: 048
     Dates: start: 20111024
  6. ATARAX P [Concomitant]
     Indication: MYCOSIS FUNGOIDES
     Dosage: 25 MG, QD
     Route: 048
     Dates: start: 20110120
  7. THYRADIN-S [Concomitant]
     Indication: HYPOTHYROIDISM
     Dosage: 25 MICROGRAM, QD
     Route: 048
     Dates: start: 20120621
  8. APREPITANT [Concomitant]
     Indication: PROPHYLAXIS
     Dosage: 125 MG, QD
     Route: 048
     Dates: start: 20120621, end: 20120621
  9. APREPITANT [Concomitant]
     Dosage: 80 MG, QD
     Route: 048
     Dates: start: 20120622, end: 20120628
  10. PARIET [Concomitant]
     Indication: GASTROOESOPHAGEAL REFLUX DISEASE
     Dosage: 10 MG, QD
     Route: 048
     Dates: start: 20120824

REACTIONS (4)
  - Nausea [Recovering/Resolving]
  - Thrombocytopenia [Recovering/Resolving]
  - Renal impairment [Recovering/Resolving]
  - Dysgeusia [Recovering/Resolving]
